FAERS Safety Report 13272371 (Version 4)
Quarter: 2018Q3

REPORT INFORMATION
  Report Type: Report from Study
  Country: BR (occurrence: BR)
  Receive Date: 20170227
  Receipt Date: 20180928
  Transmission Date: 20181010
  Serious: Yes (Other)
  Sender: FDA-Public Use
  Company Number: PHHY2016BR115131

PATIENT
  Age: 23 Year
  Sex: Female
  Weight: 69 kg

DRUGS (5)
  1. GILENYA [Suspect]
     Active Substance: FINGOLIMOD HYDROCHLORIDE
     Dosage: 0.5 MG, QD
     Route: 048
     Dates: start: 201607
  2. LANTUS [Concomitant]
     Active Substance: INSULIN GLARGINE
     Indication: DIABETES MELLITUS
     Dosage: 48 U, QD
     Route: 058
  3. GILENYA [Suspect]
     Active Substance: FINGOLIMOD HYDROCHLORIDE
     Dosage: 0.5 MG, (5 DAYS ON AND 2 DAYS OFF)
     Route: 048
     Dates: start: 201611
  4. HUMALOG [Concomitant]
     Active Substance: INSULIN LISPRO
     Indication: DIABETES MELLITUS
     Dosage: 10 YEARS AGO, PRN (VARIES ACCORDING TO THE NEED)
     Route: 058
  5. GILENYA [Suspect]
     Active Substance: FINGOLIMOD HYDROCHLORIDE
     Indication: MULTIPLE SCLEROSIS
     Dosage: 0.5 MG, QW5
     Route: 048
     Dates: start: 201505

REACTIONS (5)
  - Swelling [Recovering/Resolving]
  - Immunodeficiency [Not Recovered/Not Resolved]
  - Mumps [Recovered/Resolved]
  - Pain [Recovering/Resolving]
  - Prescribed underdose [Unknown]

NARRATIVE: CASE EVENT DATE: 20160804
